FAERS Safety Report 8918782 (Version 1)
Quarter: 2012Q4

REPORT INFORMATION
  Report Type: 
  Country: US (occurrence: US)
  Receive Date: 20121120
  Receipt Date: 20121120
  Transmission Date: 20130627
  Serious: No
  Sender: FDA-Public Use
  Company Number: US-ASTRAZENECA-2012SE21015

PATIENT
  Age: 79 Year
  Sex: Female

DRUGS (4)
  1. NEXIUM [Suspect]
     Route: 048
  2. CRESTOR [Suspect]
     Route: 048
  3. ANTIBIOTIC [Concomitant]
     Indication: LUNG INFECTION
  4. ANTIBIOTIC [Concomitant]
     Indication: BRONCHITIS

REACTIONS (5)
  - Bronchitis [Unknown]
  - Lung infection [Unknown]
  - Aphagia [Unknown]
  - Intentional drug misuse [Unknown]
  - Drug ineffective [Unknown]
